FAERS Safety Report 9032190 (Version 2)
Quarter: 2013Q1

REPORT INFORMATION
  Report Type: Spontaneous
  Country: FR (occurrence: FR)
  Receive Date: 20130122
  Receipt Date: 20130305
  Transmission Date: 20140127
  Serious: Yes (Life-Threatening, Hospitalization)
  Sender: FDA-Public Use
  Company Number: FR-PFIZER INC-2013023193

PATIENT
  Age: 79 Year
  Sex: Male

DRUGS (10)
  1. ALDACTONE [Suspect]
     Dosage: 1 DF, 1X/DAY
     Route: 048
  2. LASILIX [Suspect]
     Dosage: 20 MG, 1X/DAY
     Route: 048
  3. KARDEGIC [Concomitant]
     Dosage: 1 DF, 1X/DAY
  4. OMEPRAZOLE [Concomitant]
     Dosage: 1 DF, 1X/DAY
  5. LANTUS [Concomitant]
     Dosage: 62 IU, 2X/DAY, IN THE MORNING AND IN THE EVENING
  6. NOVORAPID [Concomitant]
     Dosage: 16 IU, 3X/DAY
  7. BISOPROLOL [Concomitant]
     Dosage: 1 DF, 1X/DAY
  8. RAMIPRIL [Concomitant]
     Dosage: 1 DF, 1X/DAY
  9. SERETIDE [Concomitant]
     Dosage: 1 DF, 1X/DAY
  10. LACTULOSE [Concomitant]
     Dosage: UNK,  3X/DAY

REACTIONS (4)
  - Dehydration [Recovered/Resolved]
  - Hypotension [Recovered/Resolved]
  - Renal failure [Recovered/Resolved]
  - Metabolic alkalosis [Recovered/Resolved]
